FAERS Safety Report 6098205-X (Version None)
Quarter: 2009Q1

REPORT INFORMATION
  Report Type: 
  Country: None (occurrence: None)
  Receive Date: 20090227
  Receipt Date: 20090216
  Transmission Date: 20090719
  Serious: Yes (Other)
  Sender: FDA-Public Use
  Company Number: FI-GILEAD-2009-0020246

PATIENT
  Sex: Male
  Weight: 70 kg

DRUGS (9)
  1. TRUVADA [Suspect]
     Indication: HIV INFECTION
     Route: 048
     Dates: start: 20081210, end: 20090209
  2. ISENTRESS [Suspect]
     Indication: HIV INFECTION
     Route: 048
     Dates: start: 20081210, end: 20090209
  3. ABACAVIR SULFATE/LAMIVUDINE [Concomitant]
     Indication: HIV INFECTION
     Dates: start: 20081029, end: 20081114
  4. REYATAZ [Concomitant]
     Indication: HIV INFECTION
  5. MAREVAN [Concomitant]
     Indication: ATRIAL FIBRILLATION
     Route: 048
  6. DIOVAN [Concomitant]
     Indication: CARDIAC FAILURE
     Route: 048
  7. DIGOXIN [Concomitant]
     Indication: CARDIAC FAILURE
     Route: 048
  8. TENOX [Concomitant]
     Indication: SLEEP DISORDER
     Route: 048
  9. STOCRIN [Concomitant]
     Indication: HIV INFECTION
     Dates: start: 20081029, end: 20081114

REACTIONS (1)
  - THROMBOCYTOPENIA [None]
